FAERS Safety Report 8174270-0 (Version None)
Quarter: 2012Q1

REPORT INFORMATION
  Report Type: 
  Country: None (occurrence: None)
  Receive Date: 20120227
  Receipt Date: 20120215
  Transmission Date: 20120608
  Serious: Yes (Other)
  Sender: FDA-Public Use
  Company Number: MC201200102

PATIENT

DRUGS (3)
  1. CLOPIDOGREL [Concomitant]
  2. ANGIOMAX [Suspect]
     Dosage: INFUSION
  3. ANGIOMAX [Suspect]
     Indication: PERCUTANEOUS CORONARY INTERVENTION
     Dosage: BOLUS

REACTIONS (1)
  - ACUTE MYOCARDIAL INFARCTION [None]
